FAERS Safety Report 5703754-7 (Version None)
Quarter: 2008Q2

REPORT INFORMATION
  Report Type: 
  Country: None (occurrence: None)
  Receive Date: 20080413
  Receipt Date: 20080407
  Transmission Date: 20081010
  Serious: Yes (Other)
  Sender: FDA-Public Use
  Company Number: PHEH2008US03677

PATIENT
  Sex: Female

DRUGS (3)
  1. TASIGNA [Suspect]
     Dosage: 800 MG, QD
     Route: 048
  2. TASIGNA [Suspect]
     Dosage: 400 MG, QD
     Route: 048
  3. TASIGNA [Suspect]
     Dosage: 800 MG, QD
     Route: 048

REACTIONS (8)
  - ARTHRALGIA [None]
  - CANCER PAIN [None]
  - NAUSEA [None]
  - PNEUMONIA [None]
  - PULMONARY CONGESTION [None]
  - PULMONARY OEDEMA [None]
  - PYREXIA [None]
  - RASH [None]
